FAERS Safety Report 6789094-6 (Version None)
Quarter: 2010Q2

REPORT INFORMATION
  Report Type: 
  Country: None (occurrence: None)
  Receive Date: 20100623
  Receipt Date: 20080718
  Transmission Date: 20101027
  Serious: No
  Sender: FDA-Public Use
  Company Number: US-PFIZER INC-2008050529

PATIENT
  Sex: Male
  Weight: 75 kg

DRUGS (2)
  1. XALATAN [Suspect]
     Indication: INTRAOCULAR PRESSURE TEST
     Route: 047
     Dates: start: 19990101
  2. BETIMOL [Concomitant]

REACTIONS (1)
  - INTRAOCULAR PRESSURE INCREASED [None]
